FAERS Safety Report 6167958-4 (Version None)
Quarter: 2009Q2

REPORT INFORMATION
  Report Type: 
  Country: None (occurrence: None)
  Receive Date: 20090427
  Receipt Date: 20090421
  Transmission Date: 20091009
  Serious: Yes (Other)
  Sender: FDA-Public Use
  Company Number: US-BAYER-200916302NA

PATIENT
  Age: 36 Year
  Sex: Female
  Weight: 69 kg

DRUGS (2)
  1. MIRENA [Suspect]
     Indication: CONTRACEPTION
     Dosage: CONTINUOUS
     Route: 015
     Dates: start: 20090303, end: 20090303
  2. WELLBUTRIN SR [Concomitant]
     Indication: ANXIETY
     Dosage: TOTAL DAILY DOSE: 200 MG
     Route: 048
     Dates: start: 20080513

REACTIONS (1)
  - UTERINE RUPTURE [None]
